FAERS Safety Report 11260476 (Version 1)
Quarter: 2020Q3

REPORT INFORMATION
  Report Type: Report from Study
  Country: US (occurrence: US)
  Receive Date: 20150710
  Receipt Date: 20150710
  Transmission Date: 20201104
  Serious: Yes (Hospitalization)
  Sender: FDA-Public Use
  Company Number: US-ASTRAZENECA-2015SE65504

PATIENT
  Sex: Female

DRUGS (7)
  1. VISTUSERTIB. [Suspect]
     Active Substance: VISTUSERTIB
     Indication: OVARIAN CANCER
     Dosage: 125 MG BID 2 DAYS ON/5 DAYS OFF
     Route: 048
     Dates: start: 20150629
  2. VISTUSERTIB. [Suspect]
     Active Substance: VISTUSERTIB
     Indication: ENDOMETRIAL CANCER RECURRENT
     Dosage: 125 MG BID 2 DAYS ON/5 DAYS OFF
     Route: 048
     Dates: start: 20150629
  3. VISTUSERTIB. [Suspect]
     Active Substance: VISTUSERTIB
     Indication: FALLOPIAN TUBE CANCER
     Dosage: 125 MG BID 2 DAYS ON/5 DAYS OFF
     Route: 048
     Dates: start: 20150629
  4. AZD2281 [Suspect]
     Active Substance: OLAPARIB
     Indication: ENDOMETRIAL CANCER RECURRENT
     Route: 048
     Dates: start: 20150629
  5. COMPAZINE [Concomitant]
     Active Substance: PROCHLORPERAZINE MALEATE
     Indication: PROPHYLAXIS OF NAUSEA AND VOMITING
     Dosage: 100 MG
     Dates: start: 20150629
  6. AZD2281 [Suspect]
     Active Substance: OLAPARIB
     Indication: FALLOPIAN TUBE CANCER
     Route: 048
     Dates: start: 20150629
  7. AZD2281 [Suspect]
     Active Substance: OLAPARIB
     Indication: OVARIAN CANCER
     Route: 048
     Dates: start: 20150629

REACTIONS (3)
  - Dehydration [Unknown]
  - Vomiting [Unknown]
  - Nausea [Unknown]

NARRATIVE: CASE EVENT DATE: 20150629
